FAERS Safety Report 7482439-3 (Version None)
Quarter: 2011Q2

REPORT INFORMATION
  Report Type: 
  Country: None (occurrence: None)
  Receive Date: 20110516
  Receipt Date: 20110510
  Transmission Date: 20111010
  Serious: Yes (Other)
  Sender: FDA-Public Use
  Company Number: SE-PFIZER INC-2011099779

PATIENT
  Age: 39 Year
  Sex: Female

DRUGS (4)
  1. PREDNISOLONE [Suspect]
     Dosage: 50 MG, UNK
     Dates: end: 20110502
  2. PREDNISOLONE [Suspect]
     Indication: PYODERMA GANGRENOSUM
     Dosage: 60 MG, UNK
     Dates: start: 20100426
  3. SULFASALAZINE [Concomitant]
     Dosage: 1 G, 2X/DAY
  4. PREDNISOLONE [Suspect]
     Indication: AUTOIMMUNE HEPATITIS
     Dosage: 30 MG, UNK

REACTIONS (11)
  - DECREASED APPETITE [None]
  - DIZZINESS [None]
  - INSOMNIA [None]
  - HYPOAESTHESIA [None]
  - NAUSEA [None]
  - VISUAL ACUITY REDUCED [None]
  - WEIGHT INCREASED [None]
  - DISTURBANCE IN ATTENTION [None]
  - PAIN IN EXTREMITY [None]
  - HEAT STROKE [None]
  - MENORRHAGIA [None]
